FAERS Safety Report 8264387-4 (Version None)
Quarter: 2012Q2

REPORT INFORMATION
  Report Type: 
  Country: None (occurrence: None)
  Receive Date: 20120406
  Receipt Date: 20120402
  Transmission Date: 20120825
  Serious: Yes (Other)
  Sender: FDA-Public Use
  Company Number: PHHY2012NO026245

PATIENT
  Age: 65 Year
  Sex: Female

DRUGS (6)
  1. KEPPRA [Concomitant]
     Dosage: UNK UKN, UNK
  2. SIMVASTATIN [Concomitant]
     Dosage: UNK UKN, UNK
  3. LEVOTHYROXINE SODIUM [Concomitant]
     Dosage: UNK UKN, UNK
  4. ZOLEDRONOC ACID [Suspect]
     Indication: OSTEOPOROSIS
     Dosage: UNK UKN, UNK
     Route: 042
     Dates: start: 20120228
  5. PANTOPRAZOLE [Concomitant]
     Dosage: UNK UKN, UNK
  6. IRBESARTAN [Concomitant]
     Dosage: UNK UKN, UNK

REACTIONS (16)
  - QUALITY OF LIFE DECREASED [None]
  - ARTHRITIS INFECTIVE [None]
  - EMOTIONAL DISTRESS [None]
  - OEDEMA PERIPHERAL [None]
  - JOINT SWELLING [None]
  - HEADACHE [None]
  - NYSTAGMUS [None]
  - DEPRESSION [None]
  - FEELING ABNORMAL [None]
  - MALAISE [None]
  - BACK PAIN [None]
  - GINGIVAL DISORDER [None]
  - ANXIETY [None]
  - MYALGIA [None]
  - PAIN [None]
  - MUSCLE SPASMS [None]
